FAERS Safety Report 11323810 (Version 2)
Quarter: 2015Q3

REPORT INFORMATION
  Report Type: Spontaneous
  Country: US (occurrence: US)
  Receive Date: 20150730
  Receipt Date: 20150814
  Transmission Date: 20151125
  Serious: Yes (Hospitalization, Other)
  Sender: FDA-Public Use
  Company Number: US-009507513-1507USA010389

PATIENT
  Age: 64 Year
  Sex: Male

DRUGS (2)
  1. TICE BCG [Suspect]
     Active Substance: BACILLUS CALMETTE-GUERIN SUBSTRAIN TICE LIVE ANTIGEN
     Dosage: SECOND COURSE OF INTRAVESICAL BCG
     Route: 043
  2. TICE BCG [Suspect]
     Active Substance: BACILLUS CALMETTE-GUERIN SUBSTRAIN TICE LIVE ANTIGEN
     Indication: BLADDER TRANSITIONAL CELL CARCINOMA
     Dosage: FIRST COURSE OF INTRAVESICAL BCG, 6 WEEKS
     Route: 043

REACTIONS (3)
  - Treatment failure [Unknown]
  - Bladder cancer recurrent [Unknown]
  - Osteomyelitis bacterial [Recovered/Resolved]
